FAERS Safety Report 13385016 (Version 1)
Quarter: 2017Q1

REPORT INFORMATION
  Report Type: Spontaneous
  Country: US (occurrence: US)
  Receive Date: 20170329
  Receipt Date: 20170329
  Transmission Date: 20170429
  Serious: No
  Sender: FDA-Public Use
  Company Number: US-SMITH AND NEPHEW, INC-2016SMT00735

PATIENT
  Sex: Female

DRUGS (1)
  1. COLLAGENASE SANTYL [Suspect]
     Active Substance: COLLAGENASE CLOSTRIDIUM HISTOLYTICUM
     Indication: WOUND
     Dosage: UNK UNK, 1X/DAY
     Route: 061
     Dates: start: 2016, end: 201608

REACTIONS (5)
  - Wound complication [Unknown]
  - Application site pain [Recovered/Resolved]
  - Skin exfoliation [Unknown]
  - Skin discolouration [Unknown]
  - Drug ineffective [Not Recovered/Not Resolved]

NARRATIVE: CASE EVENT DATE: 2016
